FAERS Safety Report 24419529 (Version 2)
Quarter: 2024Q4

REPORT INFORMATION
  Report Type: Spontaneous
  Country: TR (occurrence: TR)
  Receive Date: 20241010
  Receipt Date: 20241105
  Transmission Date: 20250115
  Serious: Yes (Other)
  Sender: SANOFI AVENTIS
  Company Number: TR-SA-2024SA282930

PATIENT
  Age: 43 Year
  Sex: Female
  Weight: 74.84 kg

DRUGS (5)
  1. LEMTRADA [Suspect]
     Active Substance: ALEMTUZUMAB
     Indication: Multiple sclerosis
     Dosage: 12 MG, 1X
     Route: 040
     Dates: start: 20230113, end: 20230117
  2. LEMTRADA [Suspect]
     Active Substance: ALEMTUZUMAB
     Dosage: 12 MG, 1X
     Route: 040
     Dates: start: 20240220, end: 20240222
  3. REDEPRA [Concomitant]
     Indication: Antidepressant therapy
     Dosage: 1 TABLET EVERY DAY
     Route: 048
  4. CIPRALEX [Concomitant]
     Active Substance: ESCITALOPRAM OXALATE
     Indication: Antidepressant therapy
     Dosage: 1 TABLET EVERY DAY
     Route: 048
  5. LIORESAL [Concomitant]
     Active Substance: BACLOFEN
     Indication: Muscle spasms
     Dosage: 2 TABLETS, EVERY 12 HOURS

REACTIONS (4)
  - Thrombosis [Recovered/Resolved]
  - Joint swelling [Recovered/Resolved]
  - Peripheral swelling [Recovered/Resolved]
  - Swelling [Recovered/Resolved]

NARRATIVE: CASE EVENT DATE: 20240813
